FAERS Safety Report 5191024-8 (Version None)
Quarter: 2006Q4

REPORT INFORMATION
  Report Type: 
  Country: None (occurrence: None)
  Receive Date: 20061218
  Receipt Date: 20061201
  Transmission Date: 20070319
  Serious: Yes (Other)
  Sender: FDA-Public Use
  Company Number: 8020781

PATIENT
  Sex: Male

DRUGS (8)
  1. KEPPRA [Suspect]
     Dosage: 500 M G 2/D
  2. KALETRA [Concomitant]
  3. ABACAVIR [Concomitant]
  4. LAMUVIDINE [Concomitant]
  5. CLOBAZAM [Concomitant]
  6. RIFABUTIN [Concomitant]
  7. ISONIAZID [Concomitant]
  8. VANCOMYCIN [Concomitant]

REACTIONS (1)
  - NEUTROPENIA [None]
